FAERS Safety Report 7399541-7 (Version None)
Quarter: 2011Q1

REPORT INFORMATION
  Report Type: 
  Country: None (occurrence: None)
  Receive Date: 20110328
  Receipt Date: 20110318
  Transmission Date: 20110831
  Serious: Yes (Other)
  Sender: FDA-Public Use
  Company Number: 2011SP012351

PATIENT
  Age: 34 Year
  Sex: Female
  Weight: 73 kg

DRUGS (2)
  1. IMPLANON [Suspect]
     Indication: CONTRACEPTION
     Dosage: 68 MG; SC
     Route: 058
     Dates: start: 20090225, end: 20110223
  2. RIFAMPICIN [Suspect]
     Indication: LATENT TUBERCULOSIS
     Dosage: 600 MG;QD;PO
     Route: 047
     Dates: start: 20101115

REACTIONS (4)
  - LATENT TUBERCULOSIS [None]
  - PREGNANCY WITH IMPLANT CONTRACEPTIVE [None]
  - DRUG INTERACTION [None]
  - DRUG EXPOSURE DURING PREGNANCY [None]
